FAERS Safety Report 9136336 (Version 1)
Quarter: 2013Q1

REPORT INFORMATION
  Report Type: Spontaneous
  Country: US (occurrence: US)
  Receive Date: 20130304
  Receipt Date: 20130304
  Transmission Date: 20140127
  Serious: No
  Sender: FDA-Public Use
  Company Number: US-ABBOTT-12P-163-0981888-00

PATIENT
  Age: 68 None
  Sex: Male
  Weight: 107.14 kg

DRUGS (11)
  1. ANDROGEL [Suspect]
     Indication: BLOOD TESTOSTERONE DECREASED
     Dosage: 4 PUMPS
     Dates: start: 20120830
  2. ANDROGEL [Suspect]
     Dosage: 2 PUMPS
  3. ANDROGEL [Suspect]
     Dosage: 3 PUMPS
     Route: 061
     Dates: start: 20121015
  4. VERAPAMIL [Suspect]
     Indication: TACHYCARDIA
     Route: 048
     Dates: start: 201210
  5. TEGRETOL [Concomitant]
     Indication: PRODUCT USED FOR UNKNOWN INDICATION
     Dosage: TAKES 200 MG IN MORNING, 400 MG AT NIGHT
  6. RISPERDAL [Concomitant]
     Indication: PRODUCT USED FOR UNKNOWN INDICATION
     Dosage: AT HOUR OF SLEEP
  7. TRAZODONE [Concomitant]
     Indication: PRODUCT USED FOR UNKNOWN INDICATION
     Dosage: AT HOUR OF SLEEP
  8. ZOLOFT [Concomitant]
     Indication: PRODUCT USED FOR UNKNOWN INDICATION
     Dosage: IN THE MORNING
  9. LOVASTATIN [Concomitant]
     Indication: BLOOD CHOLESTEROL ABNORMAL
     Route: 048
  10. GABAPENTIN [Concomitant]
     Indication: PRODUCT USED FOR UNKNOWN INDICATION
  11. MUCINEX DM [Concomitant]
     Indication: PRODUCT USED FOR UNKNOWN INDICATION

REACTIONS (16)
  - Fatigue [Recovering/Resolving]
  - Drug ineffective [Not Recovered/Not Resolved]
  - Hyperhidrosis [Recovering/Resolving]
  - Rash macular [Recovered/Resolved]
  - Hyperaesthesia [Not Recovered/Not Resolved]
  - Erythema [Not Recovered/Not Resolved]
  - Acne [Not Recovered/Not Resolved]
  - Visual acuity reduced [Not Recovered/Not Resolved]
  - Dyspnoea [Not Recovered/Not Resolved]
  - Malaise [Not Recovered/Not Resolved]
  - Palpitations [Not Recovered/Not Resolved]
  - Tachycardia [Not Recovered/Not Resolved]
  - Erythema [Recovering/Resolving]
  - Skin lesion [Recovering/Resolving]
  - Erythema [Recovering/Resolving]
  - Nasal disorder [Not Recovered/Not Resolved]
